FAERS Safety Report 14835151 (Version 1)
Quarter: 2018Q2

REPORT INFORMATION
  Report Type: Spontaneous
  Country: NL (occurrence: NL)
  Receive Date: 20180501
  Receipt Date: 20180501
  Transmission Date: 20180711
  Serious: Yes (Life-Threatening, Hospitalization, Other)
  Sender: FDA-Public Use
  Company Number: PHHY2017NL202682

PATIENT
  Age: 53 Year
  Sex: Female

DRUGS (5)
  1. CALCIUM GLUCONATE. [Suspect]
     Active Substance: CALCIUM GLUCONATE
     Indication: PRODUCT USED FOR UNKNOWN INDICATION
     Dosage: 6000 MG/H, UNK
     Route: 050
  2. CALCIUM GLUCONATE. [Suspect]
     Active Substance: CALCIUM GLUCONATE
     Dosage: 3000 MG, UNK
     Route: 050
  3. CALCIUM GLUCONATE. [Suspect]
     Active Substance: CALCIUM GLUCONATE
     Dosage: 1000 MG, UNK
     Route: 050
  4. CALCIUM GLUCONATE. [Suspect]
     Active Substance: CALCIUM GLUCONATE
     Dosage: 3000 MG/H, UNK
     Route: 050
  5. DILTIAZEM. [Suspect]
     Active Substance: DILTIAZEM
     Indication: PRODUCT USED FOR UNKNOWN INDICATION
     Dosage: 4800 MILLIGRAM DAILY;
     Route: 065

REACTIONS (8)
  - Toxicity to various agents [Recovering/Resolving]
  - Lactic acidosis [Recovered/Resolved]
  - Cardiogenic shock [Recovering/Resolving]
  - Pancreatitis necrotising [Recovered/Resolved]
  - Ischaemia [Recovering/Resolving]
  - Reperfusion injury [Recovering/Resolving]
  - Hypercalcaemia [Unknown]
  - Intentional overdose [Recovered/Resolved]
